FAERS Safety Report 21544658 (Version 1)
Quarter: 2022Q4

REPORT INFORMATION
  Report Type: Spontaneous
  Country: US (occurrence: None)
  Receive Date: 20221101
  Receipt Date: 20221101
  Transmission Date: 20230112
  Serious: Yes (Life-Threatening)
  Sender: FDA-Public Use
  Company Number: None

PATIENT
  Age: 65 Year
  Sex: Female
  Weight: 69.75 kg

DRUGS (6)
  1. CALCIPOTRIENE [Suspect]
     Active Substance: CALCIPOTRIENE
     Indication: Actinic keratosis
     Dosage: OTHER QUANTITY : 1 THIN COATING;?FREQUENCY : TWICE A DAY;?
     Route: 061
     Dates: start: 20220818, end: 20220902
  2. BETAMETHASONE DIPROPIONATE [Suspect]
     Active Substance: BETAMETHASONE DIPROPIONATE
     Indication: Actinic keratosis
     Dosage: OTHER QUANTITY : 1 THIN LAYER;?FREQUENCY : TWICE A DAY;?
     Route: 061
     Dates: start: 20220818, end: 20220902
  3. LEVOTHYROXINE [Concomitant]
     Active Substance: LEVOTHYROXINE
  4. Nutrilite Double X multivitamin [Concomitant]
  5. Nutrilite Calcium Magnesium + Vitamin D [Concomitant]
  6. Nutrilite Vision Health with Lutein [Concomitant]

REACTIONS (3)
  - Peripheral swelling [None]
  - Hemiparesis [None]
  - Urticaria [None]

NARRATIVE: CASE EVENT DATE: 20220905
